FAERS Safety Report 21257143 (Version 1)
Quarter: 2022Q3

REPORT INFORMATION
  Report Type: Report from Study
  Country: US (occurrence: US)
  Receive Date: 20220826
  Receipt Date: 20220826
  Transmission Date: 20221027
  Serious: Yes (Other)
  Sender: FDA-Public Use
  Company Number: US-TEVA-2022-US-2067259

PATIENT
  Age: 65 Year
  Sex: Female
  Weight: 110 kg

DRUGS (3)
  1. LISINOPRIL [Suspect]
     Active Substance: LISINOPRIL
     Indication: Product used for unknown indication
     Route: 065
  2. REMODULIN [Suspect]
     Active Substance: TREPROSTINIL
     Indication: Product used for unknown indication
     Route: 041
     Dates: start: 20070515
  3. REMODULIN [Suspect]
     Active Substance: TREPROSTINIL
     Dosage: 0.100 G/KG
     Route: 041

REACTIONS (3)
  - Oedema peripheral [Unknown]
  - Drug hypersensitivity [Unknown]
  - Lip swelling [Unknown]
